FAERS Safety Report 22000341 (Version 2)
Quarter: 2023Q1

REPORT INFORMATION
  Report Type: Spontaneous
  Country: DE (occurrence: DE)
  Receive Date: 20230216
  Receipt Date: 20230324
  Transmission Date: 20230417
  Serious: Yes (Other)
  Sender: FDA-Public Use
  Company Number: DE-OTSUKA-2023_003967

PATIENT
  Age: 38 Year
  Sex: Male

DRUGS (4)
  1. ABILIFY MAINTENA [Suspect]
     Active Substance: ARIPIPRAZOLE
     Indication: Schizophrenia
     Dosage: 2X 400 MG (TWO INJECTION START)
     Route: 030
     Dates: start: 20230202
  2. MIRTAZAPINE [Concomitant]
     Active Substance: MIRTAZAPINE
     Indication: Depression
     Dosage: 15 MG
     Route: 048
     Dates: start: 20230121
  3. MIRTAZAPINE [Concomitant]
     Active Substance: MIRTAZAPINE
     Dosage: 30 MG
     Route: 048
  4. CHLORPROTHIXENE [Concomitant]
     Active Substance: CHLORPROTHIXENE
     Indication: Tension
     Dosage: 4X15 MG
     Route: 065
     Dates: start: 20230121

REACTIONS (7)
  - Condition aggravated [Unknown]
  - Hyperresponsive to stimuli [Unknown]
  - Tension [Unknown]
  - Sleep disorder [Unknown]
  - Anxiety [Unknown]
  - Suicidal ideation [Unknown]
  - Incorrect dose administered [Unknown]

NARRATIVE: CASE EVENT DATE: 20230202
